FAERS Safety Report 4902415-1 (Version None)
Quarter: 2006Q1

REPORT INFORMATION
  Report Type: 
  Country: None (occurrence: None)
  Receive Date: 20060203
  Receipt Date: 20060203
  Transmission Date: 20060701
  Serious: Yes (Hospitalization)
  Sender: FDA-Public Use
  Company Number: None

PATIENT
  Sex: Female
  Weight: 77 kg

DRUGS (2)
  1. CYTARABINE [Suspect]
     Indication: ACUTE MYELOID LEUKAEMIA
     Dosage: 2172 MG
     Route: 042
     Dates: end: 20051019
  2. DAUNORUBICIN [Suspect]
     Dosage: 550 MG
     Route: 042
     Dates: end: 20061016

REACTIONS (2)
  - BONE MARROW DISORDER [None]
  - CARDIOMYOPATHY [None]
